FAERS Safety Report 22281084 (Version 5)
Quarter: 2023Q2

REPORT INFORMATION
  Report Type: Report from Study
  Country: UA (occurrence: UA)
  Receive Date: 20230504
  Receipt Date: 20230628
  Transmission Date: 20230722
  Serious: Yes (Hospitalization)
  Sender: FDA-Public Use
  Company Number: UA-AMGEN-UKRCT2023072691

PATIENT
  Age: 14 Year
  Sex: Female
  Weight: 36 kg

DRUGS (5)
  1. DENOSUMAB [Suspect]
     Active Substance: DENOSUMAB
     Indication: Osteoporosis
     Dosage: 0.59 MILLILITER
     Route: 058
     Dates: start: 20201110
  2. FOLIC ACID [Concomitant]
     Active Substance: FOLIC ACID
     Dosage: 10 MILLIGRAM
     Route: 048
     Dates: start: 20200111
  3. METHOTREXATE [Concomitant]
     Active Substance: METHOTREXATE
     Dosage: 15 MILLIGRAM
     Route: 048
     Dates: start: 20200111
  4. CHOLECALCIFEROL [Concomitant]
     Active Substance: CHOLECALCIFEROL
     Dosage: UNK
     Route: 065
     Dates: start: 20211101, end: 20220115
  5. SOMATROPIN [Concomitant]
     Active Substance: SOMATROPIN
     Dosage: 1.2 MILLIGRAM
     Route: 058
     Dates: start: 20221219

REACTIONS (1)
  - Ureterolithiasis [Recovered/Resolved]

NARRATIVE: CASE EVENT DATE: 20230423
